FAERS Safety Report 11984825 (Version 1)
Quarter: 2016Q1

REPORT INFORMATION
  Report Type: Spontaneous
  Country: US (occurrence: US)
  Receive Date: 20160201
  Receipt Date: 20160201
  Transmission Date: 20160526
  Serious: No
  Sender: FDA-Public Use
  Company Number: US-BAUSCH-BL-2015-029593

PATIENT
  Age: 72 Year
  Sex: Male
  Weight: 53.12 kg

DRUGS (3)
  1. SOOTHE XP [Concomitant]
     Active Substance: LIGHT MINERAL OIL\MINERAL OIL
     Indication: DRY EYE
     Dosage: 1 DROP IN EACH EYE AS NEEDED
     Route: 047
     Dates: start: 2015
  2. PROLENSA [Suspect]
     Active Substance: BROMFENAC SODIUM
     Indication: PREOPERATIVE CARE
     Dosage: INSTILL 1 DROP TO LEFT EYE DAILY 4 DAYS BEFORE SURGERY
     Route: 047
     Dates: start: 20151204, end: 20151204
  3. LOTEMAX [Suspect]
     Active Substance: LOTEPREDNOL ETABONATE
     Indication: PREOPERATIVE CARE
     Dosage: INSTILL ONE DROP TO AFFECTED EYE FOUR TIMES A DAY. START 4 DAYS BEFORE SURGERY
     Route: 047
     Dates: start: 20151204, end: 20151204

REACTIONS (2)
  - Vision blurred [Recovering/Resolving]
  - Eye swelling [Recovering/Resolving]

NARRATIVE: CASE EVENT DATE: 20151204
